FAERS Safety Report 5011754-8 (Version None)
Quarter: 2006Q2

REPORT INFORMATION
  Report Type: 
  Country: None (occurrence: None)
  Receive Date: 20060526
  Receipt Date: 20060518
  Transmission Date: 20061013
  Serious: Yes (Other)
  Sender: FDA-Public Use
  Company Number: US-JNJFOC-20060504688

PATIENT
  Sex: Female
  Weight: 72.58 kg

DRUGS (5)
  1. DURAGESIC-100 [Suspect]
     Route: 062
  2. AVINZA [Concomitant]
     Route: 048
  3. PERCOCET [Concomitant]
     Route: 048
  4. PERCOCET [Concomitant]
     Dosage: OXYCODONE 10 MG/ACETAMINOPHEN 650 MG, 6 IN 24 HOURS, ORAL
     Route: 048
  5. PROTONIX [Concomitant]
     Route: 048

REACTIONS (5)
  - ADRENOCORTICAL INSUFFICIENCY ACUTE [None]
  - DIARRHOEA [None]
  - INCORRECT DRUG ADMINISTRATION DURATION [None]
  - OSTEOPENIA [None]
  - SLEEP APNOEA SYNDROME [None]
